FAERS Safety Report 8242809-2 (Version None)
Quarter: 2012Q1

REPORT INFORMATION
  Report Type: 
  Country: None (occurrence: None)
  Receive Date: 20120329
  Receipt Date: 20120228
  Transmission Date: 20120608
  Serious: Yes (Other)
  Sender: FDA-Public Use
  Company Number: PHHY2012NL012133

PATIENT
  Sex: Male

DRUGS (2)
  1. PROPYLTHIOURACIL [Suspect]
     Indication: BASEDOW'S DISEASE
  2. METHIMAZOLE [Suspect]
     Indication: BASEDOW'S DISEASE

REACTIONS (15)
  - EXOMPHALOS [None]
  - FOETAL EXPOSURE DURING PREGNANCY [None]
  - PHIMOSIS [None]
  - ILEAL STENOSIS [None]
  - CARDIAC MURMUR [None]
  - HEAD CIRCUMFERENCE ABNORMAL [None]
  - MOTOR DEVELOPMENTAL DELAY [None]
  - KIDNEY MALFORMATION [None]
  - MICROPENIS [None]
  - BILIARY DILATATION [None]
  - FINGER DEFORMITY [None]
  - CEREBRAL HAEMORRHAGE [None]
  - CONGENITAL CENTRAL NERVOUS SYSTEM ANOMALY [None]
  - ALOPECIA [None]
  - FOETAL DISTRESS SYNDROME [None]
